FAERS Safety Report 12461900 (Version 1)
Quarter: 2016Q2

REPORT INFORMATION
  Report Type: Spontaneous
  Country: CA (occurrence: CA)
  Receive Date: 20160613
  Receipt Date: 20160613
  Transmission Date: 20160815
  Serious: Yes (Other)
  Sender: FDA-Public Use
  Company Number: CA-PFIZER INC-2016288531

PATIENT

DRUGS (1)
  1. PHENYTOIN SODIUM. [Suspect]
     Active Substance: PHENYTOIN SODIUM
     Dosage: 100 MG, DAILY (RATE OF 50 MG/MIN)
     Route: 040

REACTIONS (2)
  - Pulse absent [Recovered/Resolved]
  - Ventricular asystole [Recovered/Resolved]
